FAERS Safety Report 18062016 (Version 1)
Quarter: 2020Q3

REPORT INFORMATION
  Report Type: Spontaneous
  Country: ES (occurrence: ES)
  Receive Date: 20200723
  Receipt Date: 20200723
  Transmission Date: 20201103
  Serious: Yes (Other)
  Sender: FDA-Public Use
  Company Number: ES-BAYER-2020-144392

PATIENT
  Age: 26 Year
  Sex: Male
  Weight: 83 kg

DRUGS (4)
  1. KOGENATE [Suspect]
     Active Substance: ANTIHEMOPHILIC FACTOR, HUMAN RECOMBINANT
     Indication: FACTOR VIII DEFICIENCY
     Dosage: 30 IU/KG
     Dates: start: 2002, end: 2009
  2. KOGENATE [Suspect]
     Active Substance: ANTIHEMOPHILIC FACTOR, HUMAN RECOMBINANT
     Indication: FACTOR VIII DEFICIENCY
     Dosage: 30 IU/KG
     Dates: start: 2010, end: 2012
  3. KOGENATE [Suspect]
     Active Substance: ANTIHEMOPHILIC FACTOR, HUMAN RECOMBINANT
     Indication: FACTOR VIII DEFICIENCY
     Dosage: EXTRA DOSE OF KOGENATE DUE TO JOINT PAIN/ DISCOMFORT IN THE RIGHT ELBOW AND OVEREXERTION
  4. KOGENATE [Suspect]
     Active Substance: ANTIHEMOPHILIC FACTOR, HUMAN RECOMBINANT
     Indication: FACTOR VIII DEFICIENCY
     Dosage: 30 IU/KG
     Dates: start: 2014, end: 2019

REACTIONS (7)
  - Spontaneous haemorrhage [None]
  - Soft tissue haemorrhage [None]
  - Maxillofacial operation [None]
  - Musculoskeletal discomfort [None]
  - Fatigue [None]
  - Spontaneous haemorrhage [None]
  - Arthralgia [Recovering/Resolving]

NARRATIVE: CASE EVENT DATE: 2018
